FAERS Safety Report 24867705 (Version 3)
Quarter: 2025Q1

REPORT INFORMATION
  Report Type: Spontaneous
  Country: US (occurrence: US)
  Receive Date: 20250121
  Receipt Date: 20250214
  Transmission Date: 20250408
  Serious: No
  Sender: ROCHE
  Company Number: US-ROCHE-10000180048

PATIENT
  Sex: Female
  Weight: 76.57 kg

DRUGS (2)
  1. XOLAIR [Suspect]
     Active Substance: OMALIZUMAB
     Indication: Chronic spontaneous urticaria
     Route: 058
  2. XOLAIR [Suspect]
     Active Substance: OMALIZUMAB

REACTIONS (5)
  - Urticaria [Not Recovered/Not Resolved]
  - Eye swelling [Unknown]
  - Vitamin D deficiency [Unknown]
  - Vomiting [Unknown]
  - Diarrhoea [Unknown]
